FAERS Safety Report 7095417-3 (Version None)
Quarter: 2010Q4

REPORT INFORMATION
  Report Type: 
  Country: None (occurrence: None)
  Receive Date: 20101111
  Receipt Date: 20101104
  Transmission Date: 20110411
  Serious: Yes (Other)
  Sender: FDA-Public Use
  Company Number: FR-BRISTOL-MYERS SQUIBB COMPANY-15371834

PATIENT
  Age: 51 Year
  Sex: Male

DRUGS (3)
  1. REYATAZ [Suspect]
     Indication: HIV INFECTION
     Dosage: INTERRUPTED ON 08NOV2005;RESTARTED
     Route: 048
     Dates: start: 20051004
  2. COMBIVIR [Suspect]
     Indication: HIV INFECTION
     Dosage: INTERRUPTED ON 08NOV2005;RESUMED
     Route: 048
     Dates: start: 20011001
  3. NORVIR [Suspect]
     Indication: HIV INFECTION
     Dosage: INTERRUPTED ON 08NOV2005;RESUMED

REACTIONS (3)
  - CHOLELITHIASIS [None]
  - CHOLESTASIS [None]
  - CYTOLYTIC HEPATITIS [None]
